FAERS Safety Report 7702158-5 (Version None)
Quarter: 2011Q3

REPORT INFORMATION
  Report Type: 
  Country: None (occurrence: None)
  Receive Date: 20110822
  Receipt Date: 20110809
  Transmission Date: 20111222
  Serious: Yes (Hospitalization)
  Sender: FDA-Public Use
  Company Number: SE-MYLANLABS-2011S1016497

PATIENT
  Age: 59 Year
  Sex: Male

DRUGS (5)
  1. EDRONAX [Concomitant]
     Indication: PRODUCT USED FOR UNKNOWN INDICATION
  2. PROPAVAN [Concomitant]
     Indication: PRODUCT USED FOR UNKNOWN INDICATION
  3. ESIDRIX [Concomitant]
     Indication: PRODUCT USED FOR UNKNOWN INDICATION
  4. AMLODIPINE [Concomitant]
     Indication: PRODUCT USED FOR UNKNOWN INDICATION
  5. FLUOXETINE [Suspect]
     Indication: DEPRESSION
     Route: 048

REACTIONS (5)
  - DIABETES MELLITUS [None]
  - ORTHOSTATIC HYPOTENSION [None]
  - ELECTROCARDIOGRAM QT PROLONGED [None]
  - SYNCOPE [None]
  - SLEEP APNOEA SYNDROME [None]
